FAERS Safety Report 4687051-7 (Version None)
Quarter: 2005Q2

REPORT INFORMATION
  Report Type: 
  Country: None (occurrence: None)
  Receive Date: 20050608
  Receipt Date: 20050527
  Transmission Date: 20051028
  Serious: Yes (Death)
  Sender: FDA-Public Use
  Company Number: 8010777

PATIENT
  Sex: Female
  Weight: 2.9 kg

DRUGS (4)
  1. KEPPRA [Suspect]
  2. DEPAKENE [Suspect]
  3. URBANYL [Suspect]
  4. FOLIC ACID [Concomitant]

REACTIONS (10)
  - AMYOTROPHY [None]
  - ANORECTAL DISORDER [None]
  - CAESAREAN SECTION [None]
  - CONGENITAL ANOMALY [None]
  - DILATATION VENTRICULAR [None]
  - DRUG EXPOSURE DURING PREGNANCY [None]
  - LIMB MALFORMATION [None]
  - MENINGOMYELOCELE [None]
  - PARAPARESIS [None]
  - TALIPES [None]
